FAERS Safety Report 18565456 (Version 2)
Quarter: 2021Q1

REPORT INFORMATION
  Report Type: Report from Study
  Country: IE (occurrence: IE)
  Receive Date: 20201201
  Receipt Date: 20210308
  Transmission Date: 20210419
  Serious: Yes (Death, Other)
  Sender: FDA-Public Use
  Company Number: IE-SHIRE-IE202015165

PATIENT
  Age: 76 Year
  Sex: Female

DRUGS (1)
  1. HUMAN IMMUNOGLOBULIN; HYALURONIDASE [Suspect]
     Active Substance: HUMAN IMMUNOGLOBULIN G\HYALURONIDASE RECOMBINANT HUMAN
     Indication: PRODUCT USED FOR UNKNOWN INDICATION
     Dosage: 30 GRAM, Q3WEEKS
     Route: 058
     Dates: start: 20200428, end: 202101

REACTIONS (7)
  - Infection [Unknown]
  - Incorrect drug administration rate [Unknown]
  - Device infusion issue [Unknown]
  - Product storage error [Recovered/Resolved]
  - Death [Fatal]
  - Lower respiratory tract infection [Recovered/Resolved]
  - Drug intolerance [Unknown]

NARRATIVE: CASE EVENT DATE: 20200709
